FAERS Safety Report 11933491 (Version 5)
Quarter: 2017Q2

REPORT INFORMATION
  Report Type: Report from Study
  Country: US (occurrence: US)
  Receive Date: 20160121
  Receipt Date: 20170615
  Transmission Date: 20170829
  Serious: Yes (Hospitalization)
  Sender: FDA-Public Use
  Company Number: PHEH2015US003243

PATIENT
  Age: 11 Year
  Sex: Male

DRUGS (3)
  1. AFINITOR DISPERZ [Suspect]
     Active Substance: EVEROLIMUS
     Indication: ASTROCYTOMA, LOW GRADE
  2. AFINITOR DISPERZ [Suspect]
     Active Substance: EVEROLIMUS
     Indication: GANGLIOGLIOMA
     Dosage: 5 MG, QD
     Route: 048
     Dates: start: 20120928
  3. DEPAKOTE [Concomitant]
     Active Substance: DIVALPROEX SODIUM
     Indication: PRODUCT USED FOR UNKNOWN INDICATION
     Route: 065
     Dates: start: 20150603

REACTIONS (3)
  - Neoplasm progression [Unknown]
  - Seizure [Recovering/Resolving]
  - Seizure cluster [Recovered/Resolved]

NARRATIVE: CASE EVENT DATE: 20141001
